FAERS Safety Report 8066520-6 (Version None)
Quarter: 2012Q1

REPORT INFORMATION
  Report Type: 
  Country: None (occurrence: None)
  Receive Date: 20120124
  Receipt Date: 20120113
  Transmission Date: 20120608
  Serious: Yes (Hospitalization)
  Sender: FDA-Public Use
  Company Number: PHHY2011TH30520

PATIENT
  Sex: Female
  Weight: 54 kg

DRUGS (1)
  1. IMATINIB MESYLATE [Suspect]
     Indication: GASTROINTESTINAL STROMAL TUMOUR
     Dosage: 800 MG, DAILY
     Route: 048
     Dates: start: 20100712, end: 20110405

REACTIONS (3)
  - ABDOMINAL PAIN [None]
  - TUMOUR HAEMORRHAGE [None]
  - LYMPHADENOPATHY [None]
